FAERS Safety Report 10536891 (Version 1)
Quarter: 2014Q4

REPORT INFORMATION
  Report Type: Spontaneous
  Country: US (occurrence: US)
  Receive Date: 20141022
  Receipt Date: 20141022
  Transmission Date: 20150529
  Serious: No
  Sender: FDA-Public Use
  Company Number: US-RECKITT BENCKISER PHARMACEUTICAL, INC-RB-70865-2014

PATIENT
  Age: 31 Year
  Sex: Male

DRUGS (3)
  1. SUBOXONE [Suspect]
     Active Substance: BUPRENORPHINE HYDROCHLORIDE\NALOXONE HYDROCHLORIDE
     Indication: DRUG DEPENDENCE
     Dosage: 10 MG DAILY
     Route: 060
     Dates: start: 20131016
  2. E-CIGARETTE [Concomitant]
     Indication: NICOTINE DEPENDENCE
     Dosage: UNK
     Route: 055
  3. CIGARETTE [Concomitant]
     Indication: NICOTINE DEPENDENCE
     Dosage: UNK
     Route: 055
     Dates: start: 201310

REACTIONS (2)
  - Oral disorder [Not Recovered/Not Resolved]
  - Wrong technique in drug usage process [Not Recovered/Not Resolved]

NARRATIVE: CASE EVENT DATE: 201312
